FAERS Safety Report 9357678 (Version 3)
Quarter: 2013Q3

REPORT INFORMATION
  Report Type: Spontaneous
  Country: VE (occurrence: VE)
  Receive Date: 20130620
  Receipt Date: 20130807
  Transmission Date: 20140515
  Serious: Yes (Death, Other)
  Sender: FDA-Public Use
  Company Number: VE-PFIZER INC-2013183230

PATIENT
  Age: 80 Year
  Sex: Male
  Weight: 93 kg

DRUGS (5)
  1. CRIZOTINIB [Suspect]
     Indication: LUNG ADENOCARCINOMA STAGE IV
     Dosage: 250 MG, 2X/DAY
     Route: 048
     Dates: start: 20130610
  2. TRANGOREX [Concomitant]
     Indication: ATRIAL FIBRILLATION
     Dosage: 200 MG, UNK
     Route: 048
     Dates: start: 20121108
  3. SERETIDE [Concomitant]
     Dosage: 1 DF, 2X/DAY, 50/500 MG
     Dates: start: 20121108
  4. FOLIC ACID [Concomitant]
     Dosage: 10 G, UNK
     Route: 048
     Dates: start: 20120521
  5. LOSARTAN POTASSIUM W/HYDROCHLOROTHIAZIDE [Concomitant]
     Indication: HYPERTENSION
     Dosage: 1 DF, 100/12.5 MG
     Route: 048

REACTIONS (6)
  - Death [Fatal]
  - Diarrhoea [Recovered/Resolved]
  - Respiratory failure [Recovered/Resolved]
  - Bronchopneumonia [Recovering/Resolving]
  - Hypovolaemia [Recovered/Resolved]
  - Cardiac arrest [Recovered/Resolved]
